FAERS Safety Report 6244331-1 (Version None)
Quarter: 2009Q2

REPORT INFORMATION
  Report Type: 
  Country: None (occurrence: None)
  Receive Date: 20090625
  Receipt Date: 20090618
  Transmission Date: 20091009
  Serious: Yes (Death)
  Sender: FDA-Public Use
  Company Number: ES-ROCHE-633839

PATIENT
  Age: 38 Year
  Sex: Male

DRUGS (4)
  1. PEGASYS [Suspect]
     Indication: HEPATITIS C
     Route: 058
     Dates: start: 20090220, end: 20090403
  2. COPEGUS [Suspect]
     Indication: HEPATITIS C
     Route: 048
     Dates: start: 20090220, end: 20090406
  3. RILAST [Concomitant]
     Indication: ASTHMA
     Dosage: DOSE: 160
     Dates: start: 20050101
  4. PARACETAMOL [Concomitant]
     Dosage: DOSE: 500; TAKEN EVERY 8 HOURS IF NECESSARY
     Route: 048
     Dates: start: 20090220

REACTIONS (1)
  - BONE MARROW FAILURE [None]
